FAERS Safety Report 17143457 (Version 1)
Quarter: 2019Q4

REPORT INFORMATION
  Report Type: Spontaneous
  Country: FR (occurrence: FR)
  Receive Date: 20191211
  Receipt Date: 20191211
  Transmission Date: 20200122
  Serious: Yes (Death, Other)
  Sender: FDA-Public Use
  Company Number: FR-AMERICAN REGENT INC-20190554

PATIENT
  Age: 92 Year
  Sex: Male
  Weight: 88.7 kg

DRUGS (9)
  1. ATROVENT [Suspect]
     Active Substance: IPRATROPIUM BROMIDE
     Indication: CHRONIC OBSTRUCTIVE PULMONARY DISEASE
     Dosage: 3 PUFFS A DAY (3 DF, 1 IN 1 D)
     Dates: end: 20190201
  2. BRICANYL [Suspect]
     Active Substance: TERBUTALINE SULFATE
     Indication: CHRONIC OBSTRUCTIVE PULMONARY DISEASE
     Dosage: 3 PUFFS A DAY (3 DF, 1 IN 1 D)
     Dates: end: 20190201
  3. ADENURIC [Suspect]
     Active Substance: FEBUXOSTAT
     Indication: GOUT
     Dosage: 1 DOSAGE FORMS,1 IN 1 D
     Route: 048
     Dates: end: 20190201
  4. VERAPAMIL [Suspect]
     Active Substance: VERAPAMIL HYDROCHLORIDE
     Indication: HYPERTENSION
     Dosage: 1 DOSAGE FORMS,1 IN 1 D
     Route: 048
     Dates: end: 20190201
  5. ROVAMYCINE [Suspect]
     Active Substance: SPIRAMYCIN
     Indication: PNEUMONIA
     Dosage: 4 DOSAGE FORMS,1 IN 1 D 3 DAYS
     Route: 048
     Dates: start: 20190130, end: 20190201
  6. PREVISCAN (FLUINDIONE) [Suspect]
     Active Substance: FLUINDIONE
     Indication: ATRIAL FIBRILLATION
     Dosage: 20 MG,1 IN 1 D
     Route: 048
     Dates: end: 20190131
  7. CEFTRIAXONE MYLAN [Suspect]
     Active Substance: CEFTRIAXONE
     Indication: PNEUMONIA
     Dosage: 1 GM,1 IN 1 D 1 WEEKS
     Dates: start: 20190126, end: 20190201
  8. VENOFER [Suspect]
     Active Substance: IRON SUCROSE
     Indication: ANAEMIA
     Dosage: 80 MG,1 D 1 DAYS
     Dates: start: 20190131, end: 20190131
  9. RAMIPRIL MYLAN [Suspect]
     Active Substance: RAMIPRIL
     Indication: HYPERTENSION
     Dosage: 1.25 MG,1 IN 1 D
     Route: 048
     Dates: end: 20190201

REACTIONS (3)
  - Prothrombin time ratio decreased [Fatal]
  - International normalised ratio abnormal [Fatal]
  - Cerebral haematoma [Fatal]

NARRATIVE: CASE EVENT DATE: 20190201
